FAERS Safety Report 4576152-X (Version None)
Quarter: 2005Q1

REPORT INFORMATION
  Report Type: 
  Country: None (occurrence: None)
  Receive Date: 20050204
  Receipt Date: 20050124
  Transmission Date: 20050727
  Serious: Yes (Death, Life-Threatening)
  Sender: FDA-Public Use
  Company Number: 2005017792

PATIENT
  Age: 65 Year
  Sex: Female

DRUGS (4)
  1. FRAGMIN [Suspect]
     Indication: ACUTE MYOCARDIAL INFARCTION
     Dosage: 10000 I.U. (5000 I.U., TWICE DAILY), SUBCUTANEOUS
     Route: 058
     Dates: start: 20041201, end: 20041201
  2. STREPTOKINASE (STREPTOKINASE) [Concomitant]
  3. ACETYLSALICYLIC ACID SRT [Concomitant]
  4. CLOPIDOGREL BISULFATE [Concomitant]

REACTIONS (3)
  - CARDIOGENIC SHOCK [None]
  - DISEASE RECURRENCE [None]
  - MYOCARDIAL INFARCTION [None]
